FAERS Safety Report 19626310 (Version 1)
Quarter: 2021Q3

REPORT INFORMATION
  Report Type: Spontaneous
  Country: US (occurrence: US)
  Receive Date: 20210729
  Receipt Date: 20210729
  Transmission Date: 20211014
  Serious: Yes (Hospitalization)
  Sender: FDA-Public Use
  Company Number: US-STRIDES ARCOLAB LIMITED-2021SP025526

PATIENT
  Age: 52 Year
  Sex: Male

DRUGS (7)
  1. VALGANCICLOVIR. [Suspect]
     Active Substance: VALGANCICLOVIR
     Dosage: UNK, TREATMENT DOSING , WHICH WAS RENALLY ADJUSTED FOR THE INTERMITTENT DIALYSIS
     Route: 065
  2. TACROLIMUS. [Suspect]
     Active Substance: TACROLIMUS
     Indication: RENAL TRANSPLANT
     Dosage: 9?11 NG/ML AT 0?3 MONTHS; 7?9 NG/ML 3?6 MONTHS; 6?8 NG/ML AFTER 6 MONTHS
     Route: 065
  3. PREDNISOLONE. [Suspect]
     Active Substance: PREDNISOLONE
     Indication: RENAL TRANSPLANT
     Dosage: 20 MILLIGRAM DAILY, TAPERED TO 5 MG AT 3 MONTHS
     Route: 065
  4. VALGANCICLOVIR. [Suspect]
     Active Substance: VALGANCICLOVIR
     Indication: PROPHYLAXIS
     Dosage: 900 MILLIGRAM FOR 6 MONTHS
     Route: 065
  5. ANTITHYMOCYTE IMMUNOGLOBULIN (RABBIT) [Suspect]
     Active Substance: LAPINE T-LYMPHOCYTE IMMUNE GLOBULIN
     Indication: RENAL TRANSPLANT
     Dosage: UNK
     Route: 065
  6. VALGANCICLOVIR. [Suspect]
     Active Substance: VALGANCICLOVIR
     Dosage: UNK, HIGH DOSE
     Route: 065
  7. MYCOPHENOLATE MOFETIL. [Suspect]
     Active Substance: MYCOPHENOLATE MOFETIL
     Indication: RENAL TRANSPLANT
     Dosage: 750 MILLIGRAM, BID
     Route: 065

REACTIONS (4)
  - Pathogen resistance [Recovered/Resolved]
  - Renal impairment [Unknown]
  - Pneumonia [Unknown]
  - Cytomegalovirus viraemia [Recovered/Resolved]
